FAERS Safety Report 9209677 (Version 1)
Quarter: 2013Q2

REPORT INFORMATION
  Report Type: Spontaneous
  Country: US (occurrence: US)
  Receive Date: 20130404
  Receipt Date: 20130404
  Transmission Date: 20140414
  Serious: Yes (Other)
  Sender: FDA-Public Use
  Company Number: US-JNJCP-30000154185

PATIENT
  Sex: Female
  Weight: 75 kg

DRUGS (1)
  1. NEUTROGENA HEALTHY SKIN FIRMING SUNSCREEN BROAD SPECTRUM SPF15 [Suspect]
     Indication: DRY SKIN PROPHYLAXIS
     Dosage: LESS THAN A DIME SIZE AMOUNT, ONCE DAILY IN MORNING
     Route: 061
     Dates: start: 20130311, end: 20130318

REACTIONS (3)
  - Application site pruritus [Recovering/Resolving]
  - Application site erythema [Recovering/Resolving]
  - Eye swelling [Recovered/Resolved]
